FAERS Safety Report 16335016 (Version 2)
Quarter: 2019Q2

REPORT INFORMATION
  Report Type: Spontaneous
  Country: RU (occurrence: RU)
  Receive Date: 20190520
  Receipt Date: 20190524
  Transmission Date: 20190711
  Serious: Yes (Other)
  Sender: FDA-Public Use
  Company Number: RU-GLENMARK PHARMACEUTICALS-2019GMK041308

PATIENT

DRUGS (3)
  1. CANDID (CLOTRIMAZOLE) [Suspect]
     Active Substance: CLOTRIMAZOLE
     Indication: ORAL CANDIDIASIS
     Dosage: UNK (4-5 DROPS X 4-5 TIMES A DAY)
     Route: 048
     Dates: start: 20190504, end: 20190504
  2. PROBIOTIC                          /06395501/ [Concomitant]
     Active Substance: BIFIDOBACTERIUM ANIMALIS LACTIS
     Indication: PRODUCT USED FOR UNKNOWN INDICATION
     Dosage: 1 DF, QD (1 SACHET PER DAY)
     Route: 065
  3. ESPUMISAN                          /06269601/ [Concomitant]
     Indication: PRODUCT USED FOR UNKNOWN INDICATION
     Dosage: UNK
     Route: 065

REACTIONS (3)
  - Infantile back arching [Recovered/Resolved]
  - Foaming at mouth [Recovered/Resolved]
  - Cyanosis central [Recovered/Resolved]

NARRATIVE: CASE EVENT DATE: 20190504
